FAERS Safety Report 6843671-2 (Version None)
Quarter: 2010Q3

REPORT INFORMATION
  Report Type: 
  Country: None (occurrence: None)
  Receive Date: 20100714
  Receipt Date: 20100714
  Transmission Date: 20110219
  Serious: Yes (Hospitalization)
  Sender: FDA-Public Use
  Company Number: None

PATIENT
  Age: 58 Year
  Sex: Female

DRUGS (1)
  1. NOVOLOG FLEXPEN SYR 3ML 5'S; 100U/ML NOVO NORDISK [Suspect]
     Dosage: INJECT 5 TO 10 UNITS THREE TIMES A DAY

REACTIONS (2)
  - DIABETES MELLITUS INADEQUATE CONTROL [None]
  - PRODUCT QUALITY ISSUE [None]
